FAERS Safety Report 12372118 (Version 1)
Quarter: 2016Q2

REPORT INFORMATION
  Report Type: Spontaneous
  Country: CN (occurrence: CN)
  Receive Date: 20160516
  Receipt Date: 20160516
  Transmission Date: 20160815
  Serious: Yes (Other)
  Sender: FDA-Public Use
  Company Number: CN-PFIZER INC-2016246515

PATIENT
  Age: 67 Year
  Sex: Female

DRUGS (7)
  1. TORASEMIDE [Concomitant]
     Active Substance: TORSEMIDE
  2. EPIAO [Concomitant]
  3. ESTAZOLAM. [Concomitant]
     Active Substance: ESTAZOLAM
  4. NOVOLIN R [Concomitant]
     Active Substance: INSULIN HUMAN
  5. SOLU-MEDROL [Concomitant]
     Active Substance: METHYLPREDNISOLONE SODIUM SUCCINATE
  6. FAMOTIDINE. [Concomitant]
     Active Substance: FAMOTIDINE
  7. PHARMORUBICIN [Suspect]
     Active Substance: EPIRUBICIN
     Indication: BLADDER CANCER
     Dosage: 50 MG, WEEKLY (7 TIMES)
     Route: 043
     Dates: start: 20160118, end: 20160326

REACTIONS (1)
  - Interstitial lung disease [Recovering/Resolving]
